FAERS Safety Report 8965550 (Version 1)
Quarter: 2012Q4

REPORT INFORMATION
  Report Type: Spontaneous
  Country: DK (occurrence: None)
  Receive Date: 20121205
  Receipt Date: 20121205
  Transmission Date: 20130627
  Serious: Yes (Other)
  Sender: FDA-Public Use
  Company Number: 2012MA013739

PATIENT
  Age: 52 Year
  Sex: Female

DRUGS (1)
  1. METFORMIN HYDROCHLORIDE [Suspect]
     Indication: POLYCYSTIC OVARIES
     Dosage: 500 MG; TID; PO
     Route: 048
     Dates: start: 20120914, end: 20121029

REACTIONS (4)
  - Oral pain [None]
  - Dry mouth [None]
  - Burning sensation [None]
  - Alopecia [None]
